FAERS Safety Report 21766119 (Version 1)
Quarter: 2022Q4

REPORT INFORMATION
  Report Type: Spontaneous
  Country: US (occurrence: None)
  Receive Date: 20221221
  Receipt Date: 20221221
  Transmission Date: 20230112
  Serious: No
  Sender: FDA-Public Use
  Company Number: None

PATIENT
  Sex: 0

DRUGS (1)
  1. RITALIN [Suspect]
     Active Substance: METHYLPHENIDATE HYDROCHLORIDE

REACTIONS (8)
  - Feeling abnormal [None]
  - Mood altered [None]
  - Anxiety [None]
  - Memory impairment [None]
  - Attention deficit hyperactivity disorder [None]
  - Bruxism [None]
  - Decreased appetite [None]
  - Muscle rigidity [None]
